FAERS Safety Report 20113244 (Version 1)
Quarter: 2021Q4

REPORT INFORMATION
  Report Type: Spontaneous
  Country: US (occurrence: None)
  Receive Date: 20211124
  Receipt Date: 20211124
  Transmission Date: 20220303
  Serious: Yes (Hospitalization, Disabling)
  Sender: FDA-Public Use
  Company Number: None

PATIENT
  Age: 81 Year
  Sex: Male
  Weight: 92.7 kg

DRUGS (1)
  1. CUBICIN [Suspect]
     Active Substance: DAPTOMYCIN
     Indication: Staphylococcal sepsis
     Dosage: FREQUENCY : DAILY;?
     Route: 042
     Dates: start: 20210915, end: 20211003

REACTIONS (5)
  - Fatigue [None]
  - Chills [None]
  - Dyspnoea [None]
  - Eosinophilic pneumonia acute [None]
  - Acute respiratory failure [None]

NARRATIVE: CASE EVENT DATE: 20211003
